FAERS Safety Report 7597740-2 (Version None)
Quarter: 2011Q3

REPORT INFORMATION
  Report Type: 
  Country: None (occurrence: None)
  Receive Date: 20110708
  Receipt Date: 20110616
  Transmission Date: 20111222
  Serious: Yes (Other)
  Sender: FDA-Public Use
  Company Number: JP-GLAXOSMITHKLINE-B0727064A

PATIENT
  Age: 14 Year

DRUGS (3)
  1. CLONAZEPAM [Concomitant]
     Route: 048
  2. LAMICTAL [Suspect]
     Indication: PRODUCT USED FOR UNKNOWN INDICATION
     Dosage: 1MG TWICE PER DAY
     Route: 048
  3. TEGRETOL [Suspect]
     Indication: PRODUCT USED FOR UNKNOWN INDICATION
     Dosage: 40MG PER DAY
     Route: 048

REACTIONS (3)
  - DRUG INTERACTION [None]
  - COMA [None]
  - DRUG LEVEL INCREASED [None]
